FAERS Safety Report 6292329-X (Version None)
Quarter: 2009Q3

REPORT INFORMATION
  Report Type: 
  Country: None (occurrence: None)
  Receive Date: 20090731
  Receipt Date: 20090630
  Transmission Date: 20100115
  Serious: No
  Sender: FDA-Public Use
  Company Number: US-BAYER-200925215NA

PATIENT
  Age: 27 Year
  Sex: Female

DRUGS (2)
  1. MIRENA [Suspect]
     Indication: CONTRACEPTION
     Dosage: CONTINUOUS
     Route: 015
     Dates: start: 20061101
  2. METRONIDAZOLE [Concomitant]
     Route: 048
     Dates: start: 20090630

REACTIONS (3)
  - VAGINAL DISCHARGE [None]
  - VAGINAL ODOUR [None]
  - VAGINITIS BACTERIAL [None]
